FAERS Safety Report 18657162 (Version 1)
Quarter: 2020Q4

REPORT INFORMATION
  Report Type: Spontaneous
  Country: US (occurrence: US)
  Receive Date: 20201223
  Receipt Date: 20201223
  Transmission Date: 20210114
  Serious: Yes (Other)
  Sender: FDA-Public Use
  Company Number: US-COOPERSURGICAL, INC.-US-2020CPS000880

PATIENT
  Age: 23 Year
  Sex: Female
  Weight: 56.69 kg

DRUGS (2)
  1. PARAGARD T 380A [Suspect]
     Active Substance: COPPER
     Indication: CONTRACEPTION
     Dosage: UNK
     Route: 015
     Dates: start: 2015
  2. LEXAPRO [Concomitant]
     Active Substance: ESCITALOPRAM OXALATE
     Indication: DEPRESSION
     Dosage: UNK
     Route: 065

REACTIONS (21)
  - Foreign body in reproductive tract [Not Recovered/Not Resolved]
  - Body temperature increased [Unknown]
  - Influenza like illness [Not Recovered/Not Resolved]
  - Chest pain [Recovered/Resolved]
  - Menstruation irregular [Recovered/Resolved]
  - Abdominal pain lower [Recovered/Resolved]
  - Headache [Unknown]
  - Chest discomfort [Recovered/Resolved]
  - Nasopharyngitis [Recovering/Resolving]
  - Back injury [Unknown]
  - Device breakage [Not Recovered/Not Resolved]
  - Vomiting [Recovered/Resolved]
  - Myalgia [Unknown]
  - Dyspnoea [Recovered/Resolved]
  - Cough [Not Recovered/Not Resolved]
  - Syncope [Recovered/Resolved]
  - Syncope [Recovered/Resolved]
  - Unintentional medical device removal [Recovered/Resolved]
  - Menorrhagia [Not Recovered/Not Resolved]
  - Dysmenorrhoea [Recovered/Resolved]
  - Device expulsion [Not Recovered/Not Resolved]

NARRATIVE: CASE EVENT DATE: 2015
